FAERS Safety Report 5312118-X (Version None)
Quarter: 2007Q2

REPORT INFORMATION
  Report Type: 
  Country: None (occurrence: None)
  Receive Date: 20070430
  Receipt Date: 20060615
  Transmission Date: 20071010
  Serious: No
  Sender: FDA-Public Use
  Company Number: 2006UW12802

PATIENT
  Age: 80 Year
  Sex: Male
  Weight: 80.7 kg

DRUGS (3)
  1. NEXIUM [Suspect]
     Route: 048
     Dates: start: 20060601
  2. VITAMINS [Concomitant]
  3. ASPIRIN [Concomitant]

REACTIONS (4)
  - DRUG INEFFECTIVE [None]
  - DYSPHONIA [None]
  - SPEECH DISORDER [None]
  - THROAT IRRITATION [None]
